FAERS Safety Report 10031245 (Version 1)
Quarter: 2014Q1

REPORT INFORMATION
  Report Type: Spontaneous
  Country: BR (occurrence: BR)
  Receive Date: 20140324
  Receipt Date: 20140324
  Transmission Date: 20141002
  Serious: Yes (Hospitalization)
  Sender: FDA-Public Use
  Company Number: BR-AMGEN-BRASP2014020070

PATIENT
  Age: 46 Year
  Sex: Female
  Weight: 65 kg

DRUGS (6)
  1. ENBREL [Suspect]
     Indication: ANKYLOSING SPONDYLITIS
     Dosage: 50 MG, ONCE WEEKLY
     Route: 058
     Dates: start: 2011
  2. TRAMAL [Concomitant]
     Dosage: STRENGTH 50 MG, AS NEEDED
  3. ALPRAZOLAM [Concomitant]
     Indication: CARDIAC DISORDER
     Dosage: UNK
  4. DIPROSPAN                          /00582101/ [Concomitant]
     Dosage: UNSPCIFIED DOSE, ONCE WEEKLY
  5. DORMONID                           /00634101/ [Concomitant]
     Indication: SLEEP DISORDER
     Dosage: UNK
  6. AMITRIPTYLINE [Concomitant]
     Dosage: UNK

REACTIONS (2)
  - Spinal pain [Unknown]
  - Pain [Unknown]
